FAERS Safety Report 4487027-9 (Version None)
Quarter: 2004Q3

REPORT INFORMATION
  Report Type: 
  Country: None (occurrence: None)
  Receive Date: 20040921
  Receipt Date: 20040408
  Transmission Date: 20050211
  Serious: Yes (Hospitalization)
  Sender: FDA-Public Use
  Company Number: 163-20785-04040236

PATIENT
  Age: 66 Year
  Sex: Male

DRUGS (23)
  1. THALOMID [Suspect]
     Indication: MULTIPLE MYELOMA
     Dosage: ORAL
     Route: 048
     Dates: start: 20040226
  2. DEXAMETHASONE [Suspect]
     Indication: MULTIPLE MYELOMA
     Dates: start: 20040226
  3. CISPLATIN [Suspect]
     Indication: MULTIPLE MYELOMA
     Dosage: INTRAVENOUS
     Route: 042
  4. ADRIAMYCIN PFS [Suspect]
     Indication: MULTIPLE MYELOMA
     Dosage: INTRAVENOUS
     Route: 042
  5. CYCLOPHOSPHAMIDE [Suspect]
     Indication: MULTIPLE MYELOMA
     Dosage: INTRAVENOUS
     Route: 042
  6. ETOPOSIDE [Suspect]
     Indication: MULTIPLE MYELOMA
     Dosage: INTRAVENOUS
     Route: 042
  7. FOLIC ACID [Concomitant]
  8. COZAAR [Concomitant]
  9. FLAGYL [Concomitant]
  10. VANCOMYCIN [Concomitant]
  11. REGLAN [Concomitant]
  12. DOXYCYCLINE [Concomitant]
  13. EPOGEN [Concomitant]
  14. XALATAN [Concomitant]
  15. TIMOLOL MALEATE [Concomitant]
  16. PROTONIX [Concomitant]
  17. ACYCLOVIR [Concomitant]
  18. COSOPT (COSOPT) DROPS [Concomitant]
  19. PHYTONADIONE [Concomitant]
  20. ATENOLOL [Concomitant]
  21. ZITHROMAX [Concomitant]
  22. PENTAMIDINE (PENTAMIDINE) [Concomitant]
  23. ATIVAN [Concomitant]

REACTIONS (3)
  - DYSPNOEA [None]
  - NEUTROPENIA [None]
  - PLATELET COUNT DECREASED [None]
